FAERS Safety Report 18274129 (Version 1)
Quarter: 2020Q3

REPORT INFORMATION
  Report Type: Report from Study
  Country: GB (occurrence: GB)
  Receive Date: 20200916
  Receipt Date: 20200916
  Transmission Date: 20201103
  Serious: Yes (Other)
  Sender: FDA-Public Use
  Company Number: GB-JNJFOC-20200913837

PATIENT
  Sex: Female

DRUGS (2)
  1. STELARA [Suspect]
     Active Substance: USTEKINUMAB
  2. STELARA [Suspect]
     Active Substance: USTEKINUMAB
     Indication: CROHN^S DISEASE
     Route: 058
     Dates: start: 2020

REACTIONS (7)
  - Rhinitis [Unknown]
  - Dry throat [Unknown]
  - Hot flush [Unknown]
  - Dyspnoea [Unknown]
  - Fatigue [Unknown]
  - Cataract [Unknown]
  - Dizziness [Unknown]

NARRATIVE: CASE EVENT DATE: 2020
